FAERS Safety Report 18044363 (Version 1)
Quarter: 2020Q3

REPORT INFORMATION
  Report Type: Spontaneous
  Country: CA (occurrence: CA)
  Receive Date: 20200720
  Receipt Date: 20200720
  Transmission Date: 20201103
  Serious: Yes (Other)
  Sender: FDA-Public Use
  Company Number: CA-MYLANLABS-2020M1064883

PATIENT
  Age: 34 Year
  Sex: Female

DRUGS (3)
  1. CISPLATIN. [Suspect]
     Active Substance: CISPLATIN
     Indication: CERVIX CARCINOMA STAGE III
     Dosage: 40 MILLIGRAM/SQ. METER, QW
     Route: 065
  2. GEMCITABINE. [Suspect]
     Active Substance: GEMCITABINE
     Indication: CERVIX CARCINOMA STAGE II
     Dosage: 800 MILLIGRAM/SQ. METER, CYCLE 2 CYCLES OF ADJUVANT THERAPY
     Route: 065
  3. CISPLATIN. [Suspect]
     Active Substance: CISPLATIN
     Dosage: 50 MILLIGRAM/SQ. METER, CYCLE 2 CYCLES OF ADJUVANT THERAPY
     Route: 065

REACTIONS (3)
  - Myositis [Recovered/Resolved]
  - Joint range of motion decreased [Recovered/Resolved]
  - Recall phenomenon [Recovered/Resolved]
